FAERS Safety Report 7036324-1 (Version None)
Quarter: 2010Q4

REPORT INFORMATION
  Report Type: 
  Country: None (occurrence: None)
  Receive Date: 20101008
  Receipt Date: 20101001
  Transmission Date: 20110411
  Serious: Yes (Hospitalization)
  Sender: FDA-Public Use
  Company Number: US-AMGEN-KDC438050

PATIENT
  Age: 59 Year
  Sex: Male
  Weight: 83 kg

DRUGS (18)
  1. PANITUMUMAB [Suspect]
     Indication: OESOPHAGEAL CARCINOMA
     Route: 042
     Dates: start: 20100708
  2. TAXOTERE [Suspect]
     Route: 042
     Dates: start: 20100708
  3. CISPLATIN [Suspect]
     Route: 042
     Dates: start: 20100708
  4. RADIATION THERAPY [Suspect]
  5. LISINOPRIL [Concomitant]
     Route: 048
  6. PROTONIX [Concomitant]
     Route: 048
  7. CARAFATE [Concomitant]
     Route: 048
  8. LIPITOR [Concomitant]
     Route: 048
  9. ATENOLOL [Concomitant]
     Route: 048
  10. ANDROGEL [Concomitant]
  11. HYDROCODONE [Concomitant]
     Route: 048
  12. PERCOCET [Concomitant]
     Route: 048
  13. XANAX [Concomitant]
     Route: 048
  14. HYDROCORTISONE [Concomitant]
  15. MINOCYCLINE HCL [Concomitant]
  16. COMPAZINE [Concomitant]
     Dates: end: 20100801
  17. OXYCONTIN [Concomitant]
     Dates: end: 20100801
  18. ZOFRAN [Concomitant]

REACTIONS (3)
  - ACTIVATED PARTIAL THROMBOPLASTIN TIME PROLONGED [None]
  - LYMPHOPENIA [None]
  - PULMONARY EMBOLISM [None]
